FAERS Safety Report 6173381-9 (Version None)
Quarter: 2009Q2

REPORT INFORMATION
  Report Type: 
  Country: None (occurrence: None)
  Receive Date: 20090424
  Receipt Date: 20090129
  Transmission Date: 20091009
  Serious: Yes (Hospitalization)
  Sender: FDA-Public Use
  Company Number: SPV1-2009-00154

PATIENT

DRUGS (1)
  1. VYVANSE [Suspect]

REACTIONS (1)
  - PSYCHOTIC DISORDER [None]
